FAERS Safety Report 5913397-8 (Version None)
Quarter: 2008Q3

REPORT INFORMATION
  Report Type: 
  Country: None (occurrence: None)
  Receive Date: 20080909
  Receipt Date: 20071102
  Transmission Date: 20090109
  Serious: Yes (Hospitalization)
  Sender: FDA-Public Use
  Company Number: 163-20785-07081252

PATIENT
  Age: 49 Year
  Sex: Female
  Weight: 61.6892 kg

DRUGS (19)
  1. THALOMID [Suspect]
     Indication: MULTIPLE MYELOMA
     Dosage: 200-100MG, QD, ORAL
     Route: 048
     Dates: start: 20060207, end: 20070802
  2. VELCADE [Suspect]
     Indication: MULTIPLE MYELOMA
     Dosage: 1MG/M2, DAYS 1, 4, 8, 11 Q 28 DAYS
     Dates: start: 20060204, end: 20070731
  3. DEXAMETHASONE TAB [Suspect]
     Indication: MULTIPLE MYELOMA
     Dosage: 40-20MG, DAYS 1-4 AND 8-11 Q 28 DAYS
     Dates: start: 20060207, end: 20070802
  4. CISPLATIN [Suspect]
     Indication: MULTIPLE MYELOMA
     Dosage: 10-7.5MG/M2
     Dates: start: 20060207, end: 20070202
  5. ADRIAMYCIN PFS [Suspect]
     Indication: MULTIPLE MYELOMA
     Dosage: 10-7.5MG/M2
     Dates: start: 20060207, end: 20070202
  6. CYCLOPHOSPHAMIDE [Suspect]
     Indication: MULTIPLE MYELOMA
     Dosage: 400-300MG/M2
     Dates: start: 20060207, end: 20070202
  7. ETOPOSIDE [Suspect]
     Indication: MULTIPLE MYELOMA
     Dosage: 40-30MG/M2
     Dates: start: 20060207, end: 20070202
  8. MAGNESIUM (MAGNESIUM) [Concomitant]
  9. POTASSIUM CHLORIDE [Concomitant]
  10. LEVOTHYROXINE SODIUM [Concomitant]
  11. OXYCODONE HCL [Concomitant]
  12. ACYCLOVIR [Concomitant]
  13. ZOCOR [Concomitant]
  14. NEXIUM [Concomitant]
  15. TOPROL-XL [Concomitant]
  16. MULTIVITAMIN [Concomitant]
  17. POTASSIUM CHLORIDE [Concomitant]
  18. MAGNESIUM OXIDE (MAGNESIUM OXIDE) [Concomitant]
  19. COUMADIN [Concomitant]

REACTIONS (4)
  - ACUTE CORONARY SYNDROME [None]
  - CHEST DISCOMFORT [None]
  - MYOCARDIAL INFARCTION [None]
  - MYOCARDIAL ISCHAEMIA [None]
